FAERS Safety Report 21947370 (Version 1)
Quarter: 2023Q1

REPORT INFORMATION
  Report Type: Spontaneous
  Country: US (occurrence: US)
  Receive Date: 20230202
  Receipt Date: 20230202
  Transmission Date: 20230417
  Serious: No
  Sender: FDA-Public Use
  Company Number: US-SA-SAC20230201000445

PATIENT
  Sex: Female

DRUGS (5)
  1. DUPIXENT [Suspect]
     Active Substance: DUPILUMAB
     Indication: Dermatitis
     Dosage: 300 MG, QOW
     Route: 058
  2. FLUOCINOLONE [Concomitant]
     Active Substance: FLUOCINOLONE
  3. BETAMETHASONE [Concomitant]
     Active Substance: BETAMETHASONE
  4. PREDNISONE [Concomitant]
     Active Substance: PREDNISONE
  5. ZYRTEC [Concomitant]
     Active Substance: CETIRIZINE HYDROCHLORIDE

REACTIONS (2)
  - Injection site bruising [Unknown]
  - Product use in unapproved indication [Unknown]
